FAERS Safety Report 8044590-9 (Version None)
Quarter: 2012Q1

REPORT INFORMATION
  Report Type: 
  Country: None (occurrence: None)
  Receive Date: 20120113
  Receipt Date: 20120113
  Transmission Date: 20120608
  Serious: Yes (Life-Threatening, Other)
  Sender: FDA-Public Use
  Company Number: None

PATIENT
  Age: 53 Year
  Sex: Female
  Weight: 107.5 kg

DRUGS (1)
  1. CYMBALTA [Suspect]
     Indication: DEPRESSION
     Dosage: 60 MG
     Route: 048
     Dates: start: 20070101, end: 20111228

REACTIONS (5)
  - MEDICATION ERROR [None]
  - WITHDRAWAL SYNDROME [None]
  - HYPOTENSION [None]
  - ARRHYTHMIA [None]
  - DIZZINESS [None]
